FAERS Safety Report 4618759-7 (Version None)
Quarter: 2005Q1

REPORT INFORMATION
  Report Type: 
  Country: None (occurrence: None)
  Receive Date: 20050323
  Receipt Date: 20050312
  Transmission Date: 20050727
  Serious: Yes (Other)
  Sender: FDA-Public Use
  Company Number: 2005044748

PATIENT
  Sex: 0

DRUGS (1)
  1. CEREBYX [Suspect]
     Indication: ILL-DEFINED DISORDER
     Dosage: UNKNOWN
     Route: 065

REACTIONS (3)
  - EXTRAVASATION [None]
  - INFUSION SITE ERYTHEMA [None]
  - INJECTION SITE SWELLING [None]
